FAERS Safety Report 17261399 (Version 1)
Quarter: 2020Q1

REPORT INFORMATION
  Report Type: Spontaneous
  Country: FR (occurrence: FR)
  Receive Date: 20200113
  Receipt Date: 20200113
  Transmission Date: 20200409
  Serious: Yes (Hospitalization)
  Sender: FDA-Public Use
  Company Number: FR-ACCORD-169325

PATIENT
  Age: 68 Year
  Sex: Male
  Weight: 69 kg

DRUGS (8)
  1. FLUOROURACIL ACCORD [Suspect]
     Active Substance: FLUOROURACIL
     Indication: ADENOCARCINOMA OF COLON
     Dosage: TREATMENT FOLFOX
     Route: 041
     Dates: start: 20191115, end: 20191116
  2. BROMAZEPAM [Concomitant]
     Active Substance: BROMAZEPAM
     Route: 048
  3. OXALIPLATIN. [Suspect]
     Active Substance: OXALIPLATIN
     Indication: ADENOCARCINOMA OF COLON
     Dosage: TREATMENT FOLFOX
     Route: 041
     Dates: start: 20191115
  4. APROVEL [Concomitant]
     Active Substance: IRBESARTAN
     Route: 048
  5. ZYMAD [Concomitant]
     Active Substance: CHOLECALCIFEROL
     Route: 048
  6. FOLINIC ACID [Suspect]
     Active Substance: LEUCOVORIN
     Indication: CHEMOTHERAPY TOXICITY ATTENUATION
     Dosage: CURE FOLFOX
     Route: 041
     Dates: start: 20191115
  7. FRAGMINE [Concomitant]
     Active Substance: DALTEPARIN SODIUM
     Route: 058
  8. LIPANTHYL [Concomitant]
     Active Substance: FENOFIBRATE
     Route: 048

REACTIONS (2)
  - Acute kidney injury [Recovering/Resolving]
  - Diarrhoea [Recovered/Resolved]

NARRATIVE: CASE EVENT DATE: 20191117
